FAERS Safety Report 4938216-8 (Version None)
Quarter: 2006Q1

REPORT INFORMATION
  Report Type: 
  Country: None (occurrence: None)
  Receive Date: 20060309
  Receipt Date: 20051020
  Transmission Date: 20060701
  Serious: Yes (Hospitalization, Other)
  Sender: FDA-Public Use
  Company Number: US-MERCK-0510USA08467

PATIENT
  Age: 54 Year
  Sex: Male
  Weight: 90 kg

DRUGS (7)
  1. VIOXX [Suspect]
     Indication: BACK PAIN
     Route: 048
     Dates: start: 20020101, end: 20040930
  2. PRINIVIL [Concomitant]
     Indication: HYPERTENSION
     Route: 065
  3. ZOCOR [Concomitant]
     Route: 065
  4. GLUCOPHAGE [Concomitant]
     Route: 065
  5. AVANDIA [Concomitant]
     Route: 065
  6. AMARYL [Concomitant]
     Route: 065
  7. ASPIRIN [Concomitant]
     Route: 065

REACTIONS (8)
  - APHASIA [None]
  - ARTERIOSCLEROSIS [None]
  - CEREBROVASCULAR ACCIDENT [None]
  - DEPRESSION [None]
  - EMPHYSEMA [None]
  - MULTIPLE SYSTEM ATROPHY [None]
  - PNEUMONIA [None]
  - SLEEP APNOEA SYNDROME [None]
